FAERS Safety Report 25894004 (Version 1)
Quarter: 2025Q4

REPORT INFORMATION
  Report Type: Spontaneous
  Country: US (occurrence: US)
  Receive Date: 20251008
  Receipt Date: 20251008
  Transmission Date: 20260118
  Serious: No
  Sender: ALEXION PHARMACEUTICALS
  Company Number: US-AstraZeneca-CH-00964707AP

PATIENT
  Sex: Female

DRUGS (1)
  1. SYMBICORT [Suspect]
     Active Substance: BUDESONIDE\FORMOTEROL FUMARATE DIHYDRATE
     Dosage: 160 MICROGRAM

REACTIONS (5)
  - Wrong technique in product usage process [Unknown]
  - Oral pain [Unknown]
  - Device use issue [Unknown]
  - Incorrect dose administered by device [Unknown]
  - Off label use [Unknown]
